FAERS Safety Report 18812050 (Version 1)
Quarter: 2021Q1

REPORT INFORMATION
  Report Type: Spontaneous
  Country: US (occurrence: US)
  Receive Date: 20210130
  Receipt Date: 20210130
  Transmission Date: 20210419
  Serious: No
  Sender: FDA-Public Use
  Company Number: US-MACLEODS PHARMACEUTICALS US LTD-MAC2021029898

PATIENT

DRUGS (1)
  1. VALSARTAN 160 MG FILM COATED TABLETS [Suspect]
     Active Substance: VALSARTAN
     Indication: PRODUCT USED FOR UNKNOWN INDICATION
     Dosage: 160 MILLIGRAM
     Route: 065

REACTIONS (6)
  - Product odour abnormal [Unknown]
  - Product taste abnormal [Unknown]
  - Urine output decreased [Unknown]
  - Manufacturing issue [Unknown]
  - Hypertension [Unknown]
  - Drug ineffective [Unknown]
